FAERS Safety Report 4325398-4 (Version None)
Quarter: 2004Q1

REPORT INFORMATION
  Report Type: 
  Country: None (occurrence: None)
  Receive Date: 20040324
  Receipt Date: 20040310
  Transmission Date: 20041129
  Serious: Yes (Life-Threatening, Other)
  Sender: FDA-Public Use
  Company Number: 200410145BCA

PATIENT
  Age: 38 Year
  Sex: Female

DRUGS (18)
  1. CIPRO [Suspect]
     Indication: LOWER RESPIRATORY TRACT INFECTION
     Dosage: 400 MG BID, INTRAVENOUS
     Route: 042
     Dates: start: 20030928
  2. CIPRO [Suspect]
     Indication: LOWER RESPIRATORY TRACT INFECTION
     Dosage: 500 MG , BID, ORAL  : 750 MG BID ORAL
     Route: 048
     Dates: start: 20030929
  3. CIPRO [Suspect]
     Indication: LOWER RESPIRATORY TRACT INFECTION
     Dosage: 500 MG , BID, ORAL  : 750 MG BID ORAL
     Route: 048
     Dates: start: 20030930
  4. PHENYTOIN [Concomitant]
  5. RANITIDINE [Concomitant]
  6. PHENYLEPHRINE [Concomitant]
  7. HUMULIN R [Concomitant]
  8. HEPARIN [Concomitant]
  9. MORPHINE [Concomitant]
  10. MIDAZOLAM HCL [Concomitant]
  11. MAGNESIUM SULFATE [Concomitant]
  12. POTASSIUM PHOSPHATES [Concomitant]
  13. CALCIUM GLUCONATE [Concomitant]
  14. POTASSIUM CHLORIDE [Concomitant]
  15. CALCIUM CHLORIDE ^BIOTIKA^ [Concomitant]
  16. MANNITOL [Concomitant]
  17. TOBREX [Concomitant]
  18. PIPERACILLIN/TAZOBACTAM [Concomitant]

REACTIONS (4)
  - ELECTROCARDIOGRAM QT PROLONGED [None]
  - TORSADE DE POINTES [None]
  - VENTRICULAR EXTRASYSTOLES [None]
  - VENTRICULAR TACHYCARDIA [None]
